FAERS Safety Report 7419022 (Version 4)
Quarter: 2013Q4

REPORT INFORMATION
  Report Type: Spontaneous
  Country: AU (occurrence: AU)
  Receive Date: 20100614
  Receipt Date: 20131128
  Transmission Date: 20140711
  Serious: Yes (Hospitalization, Other)
  Sender: FDA-Public Use
  Company Number: AU-PFIZER INC-2010069509

PATIENT
  Sex: Female

DRUGS (1)
  1. LYRICA [Suspect]
     Indication: MYALGIA
     Dosage: UNK

REACTIONS (3)
  - Dyspnoea [Unknown]
  - Myalgia [Unknown]
  - Urinary bladder haemorrhage [Unknown]
